FAERS Safety Report 6769535-0 (Version None)
Quarter: 2010Q2

REPORT INFORMATION
  Report Type: 
  Country: None (occurrence: None)
  Receive Date: 20100615
  Receipt Date: 20100607
  Transmission Date: 20101027
  Serious: Yes (Hospitalization, Disabling, Congenital Anomaly, Other)
  Sender: FDA-Public Use
  Company Number: US-TEVA-232004USA

PATIENT
  Sex: Male

DRUGS (2)
  1. METOCLOPRAMIDE [Suspect]
     Indication: VOMITING IN PREGNANCY
     Dosage: AS NEEDED
     Route: 064
     Dates: start: 20080715
  2. PRENATAL VITAMINS [Concomitant]
     Route: 063

REACTIONS (34)
  - ASPIRATION [None]
  - CONGENITAL EYELID MALFORMATION [None]
  - CONGENITAL GENITAL MALFORMATION MALE [None]
  - CONGENITAL HEARING DISORDER [None]
  - CONGENITAL HIP DEFORMITY [None]
  - CONGENITAL HYPOTHYROIDISM [None]
  - CONGENITAL JOINT MALFORMATION [None]
  - CONGENITAL LARYNGEAL STRIDOR [None]
  - CONGENITAL NEUROLOGICAL DISORDER [None]
  - CONGENITAL SKIN DISORDER [None]
  - CONVULSION [None]
  - CYANOSIS NEONATAL [None]
  - FINGER DEFORMITY [None]
  - HYDROCELE [None]
  - HYPERTONIA [None]
  - JAUNDICE NEONATAL [None]
  - JOINT CONTRACTURE [None]
  - JOINT RANGE OF MOTION DECREASED [None]
  - LARYNGOMALACIA [None]
  - LIMB MALFORMATION [None]
  - MACROCEPHALY [None]
  - MICROGNATHIA [None]
  - MICROPHTHALMOS [None]
  - MOBILITY DECREASED [None]
  - MOVEMENT DISORDER [None]
  - MUSCLE TWITCHING [None]
  - NASAL CONGESTION [None]
  - NASOPHARYNGITIS [None]
  - PERIPHERAL OEDEMA NEONATAL [None]
  - RESPIRATORY TRACT CONGESTION [None]
  - RHINORRHOEA [None]
  - SEPSIS NEONATAL [None]
  - STAPHYLOCOCCAL INFECTION [None]
  - TORTICOLLIS [None]
